FAERS Safety Report 7278858-0 (Version None)
Quarter: 2011Q1

REPORT INFORMATION
  Report Type: 
  Country: None (occurrence: None)
  Receive Date: 20110207
  Receipt Date: 20110117
  Transmission Date: 20110831
  Serious: No
  Sender: FDA-Public Use
  Company Number: US-BAYER-2011-005927

PATIENT
  Sex: Male
  Weight: 20.408 kg

DRUGS (2)
  1. EXCEDRIN (MIGRAINE) [Suspect]
     Indication: ACCIDENTAL DRUG INTAKE BY CHILD
     Dosage: 1 DF, ONCE
     Route: 048
     Dates: start: 20110116, end: 20110116
  2. ALEVE (CAPLET) [Suspect]
     Indication: ACCIDENTAL DRUG INTAKE BY CHILD
     Dosage: COUNT BOTTLE 200S ARTHRITIS CAP
     Route: 048
     Dates: start: 20110116, end: 20110116

REACTIONS (1)
  - NO ADVERSE EVENT [None]
